FAERS Safety Report 8702308 (Version 3)
Quarter: 2013Q3

REPORT INFORMATION
  Report Type: Spontaneous
  Country: US (occurrence: US)
  Receive Date: 20120803
  Receipt Date: 20130731
  Transmission Date: 20140515
  Serious: Yes (Hospitalization)
  Sender: FDA-Public Use
  Company Number: US-UCBSA-062811

PATIENT
  Age: 55 Year
  Sex: Female
  Weight: 61.24 kg

DRUGS (9)
  1. CIMZIA [Suspect]
     Indication: RHEUMATOID ARTHRITIS
     Dosage: MAINTENANCE
     Dates: end: 2012
  2. METHOTREXATE [Concomitant]
     Indication: JUVENILE IDIOPATHIC ARTHRITIS
     Dosage: 2.5 MG, 8 TABLETS
  3. LEVOTHYROXINE [Concomitant]
     Dosage: 137 MCG
  4. BENAZEPRIL [Concomitant]
     Indication: HYPERTENSION
     Dosage: 20 MG
  5. DICLOFENAC POTASSIUM [Concomitant]
     Indication: PSORIASIS
     Dosage: 50 MG
  6. FOLIC ACID [Concomitant]
     Dosage: 1 MG
  7. METOPROLOL ER [Concomitant]
     Dosage: 50 MG
  8. NORVASC [Concomitant]
     Dosage: 5 MG
  9. PLAVIX [Concomitant]
     Dosage: 75 MG

REACTIONS (1)
  - Osteomyelitis [Not Recovered/Not Resolved]
